FAERS Safety Report 7146325-0 (Version None)
Quarter: 2010Q4

REPORT INFORMATION
  Report Type: 
  Country: None (occurrence: None)
  Receive Date: 20101208
  Receipt Date: 20101125
  Transmission Date: 20110411
  Serious: Yes (Life-Threatening)
  Sender: FDA-Public Use
  Company Number: GXKR2010IT13386

PATIENT
  Sex: Male

DRUGS (1)
  1. BICALUTAMIDE [Suspect]
     Indication: PROSTATE CANCER
     Dosage: 150 MG, UNK
     Route: 048
     Dates: start: 20100101, end: 20101101

REACTIONS (4)
  - DERMATITIS BULLOUS [None]
  - DYSPNOEA [None]
  - RESPIRATORY FAILURE [None]
  - TONGUE OEDEMA [None]
